FAERS Safety Report 16544299 (Version 1)
Quarter: 2019Q3

REPORT INFORMATION
  Report Type: Spontaneous
  Country: US (occurrence: US)
  Receive Date: 20190528
  Receipt Date: 20190528
  Transmission Date: 20191004
  Serious: Yes (Hospitalization)
  Sender: FDA-Public Use
  Company Number: None

PATIENT
  Age: 11 Year
  Sex: Male

DRUGS (1)
  1. TOBRAMYCIN 300MG/5ML [Suspect]
     Active Substance: TOBRAMYCIN
     Indication: CYSTIC FIBROSIS
     Dosage: ?          OTHER DOSE:300MG/5ML;?
     Route: 055
     Dates: start: 20190528

REACTIONS (5)
  - Cough [None]
  - Cyanosis [None]
  - Cystic fibrosis [None]
  - Pharyngitis streptococcal [None]
  - Condition aggravated [None]

NARRATIVE: CASE EVENT DATE: 201905
